FAERS Safety Report 10525716 (Version 2)
Quarter: 2014Q4

REPORT INFORMATION
  Report Type: Spontaneous
  Country: JP (occurrence: JP)
  Receive Date: 20141017
  Receipt Date: 20141121
  Transmission Date: 20150528
  Serious: No
  Sender: FDA-Public Use
  Company Number: PHHY2014JP134456

PATIENT
  Age: 65 Year
  Sex: Female

DRUGS (4)
  1. EXELON PATCH [Suspect]
     Active Substance: RIVASTIGMINE
     Dosage: 13.5 MG DAILY (DAILY DOSE: 6.9 MG/24 HOURS)
     Route: 062
     Dates: start: 20140901, end: 20140908
  2. EXELON PATCH [Suspect]
     Active Substance: RIVASTIGMINE
     Indication: DEMENTIA ALZHEIMER^S TYPE
     Dosage: 4.5MG DAILY (DAILY DOSE: 1.9 MG/24 HOURS)
     Route: 062
     Dates: start: 20140804, end: 20140817
  3. EXELON PATCH [Suspect]
     Active Substance: RIVASTIGMINE
     Dosage: 9 MG, DAILY (DAILY DOSE: 4.6MG/24 HOURS)
     Route: 062
     Dates: start: 20140818, end: 20140831
  4. ARICEPT [Suspect]
     Active Substance: DONEPEZIL HYDROCHLORIDE
     Indication: PRODUCT USED FOR UNKNOWN INDICATION
     Dosage: UNK
     Route: 065
     Dates: start: 20140908

REACTIONS (1)
  - Fall [Unknown]
